FAERS Safety Report 7979434-4 (Version None)
Quarter: 2011Q4

REPORT INFORMATION
  Report Type: 
  Country: None (occurrence: None)
  Receive Date: 20111213
  Receipt Date: 20111213
  Transmission Date: 20120403
  Serious: Yes (Hospitalization, Other)
  Sender: FDA-Public Use
  Company Number: None

PATIENT
  Age: 66 Year
  Sex: Male
  Weight: 75.9 kg

DRUGS (2)
  1. LITHIUM CARBONATE [Suspect]
     Indication: BIPOLAR DISORDER
     Dosage: 900 MG EVERY DAY PO
     Route: 048
     Dates: start: 20110804, end: 20110826
  2. LITHIUM CARBONATE [Suspect]
     Indication: MANIA
     Dosage: 900 MG EVERY DAY PO
     Route: 048
     Dates: start: 20110804, end: 20110826

REACTIONS (13)
  - NEPHROGENIC DIABETES INSIPIDUS [None]
  - LETHARGY [None]
  - TOXICITY TO VARIOUS AGENTS [None]
  - RENAL FAILURE ACUTE [None]
  - HYPERNATRAEMIA [None]
  - INCONTINENCE [None]
  - SEDATION [None]
  - TREMOR [None]
  - ATAXIA [None]
  - MENTAL STATUS CHANGES [None]
  - LEUKOCYTOSIS [None]
  - HYPERCALCAEMIA [None]
  - CONFUSIONAL STATE [None]
